FAERS Safety Report 9058621 (Version 1)
Quarter: 2013Q1

REPORT INFORMATION
  Report Type: Spontaneous
  Country: US (occurrence: US)
  Receive Date: 20130211
  Receipt Date: 20130211
  Transmission Date: 20140127
  Serious: Yes (Hospitalization, Other)
  Sender: FDA-Public Use
  Company Number: US-GENZYME-FABR-1003019

PATIENT
  Sex: Male

DRUGS (1)
  1. FABRAZYME [Suspect]
     Indication: FABRY^S DISEASE
     Dosage: 80 MG, Q2W
     Route: 042
     Dates: start: 200407, end: 201210

REACTIONS (3)
  - Sepsis [Not Recovered/Not Resolved]
  - Intestinal perforation [Not Recovered/Not Resolved]
  - General physical health deterioration [Not Recovered/Not Resolved]
